FAERS Safety Report 23588809 (Version 1)
Quarter: 2024Q1

REPORT INFORMATION
  Report Type: Other
  Country: CH (occurrence: None)
  Receive Date: 20240303
  Receipt Date: 20240303
  Transmission Date: 20240409
  Serious: Yes (Other)
  Sender: FDA-Public Use
  Company Number: CH-Square-000207

PATIENT
  Age: 80 Year
  Sex: Male

DRUGS (2)
  1. CALCIUM BICARBONATE [Suspect]
     Active Substance: CALCIUM BICARBONATE
     Indication: Oesophagitis ulcerative
  2. VITAMIN D [Suspect]
     Active Substance: VITAMIN D NOS
     Indication: Foot fracture
     Dosage: 60000 IU DAILY
     Route: 048

REACTIONS (1)
  - Milk-alkali syndrome [Unknown]
